FAERS Safety Report 7657043-4 (Version None)
Quarter: 2011Q3

REPORT INFORMATION
  Report Type: 
  Country: None (occurrence: None)
  Receive Date: 20110804
  Receipt Date: 20110727
  Transmission Date: 20111222
  Serious: Yes (Disabling)
  Sender: FDA-Public Use
  Company Number: AU-B.I. PHARMACEUTICALS,INC./RIDGEFIELD-2011-BP-19047YA

PATIENT
  Age: 65 Year
  Sex: Male

DRUGS (2)
  1. DUTASTERIDE [Suspect]
     Dates: start: 20110316
  2. TAMSULOSIN HCL [Suspect]
     Dates: start: 20110316

REACTIONS (2)
  - BURNING SENSATION [None]
  - DYSURIA [None]
